FAERS Safety Report 24696968 (Version 8)
Quarter: 2025Q1

REPORT INFORMATION
  Report Type: Spontaneous
  Country: GR (occurrence: GR)
  Receive Date: 20241204
  Receipt Date: 20250317
  Transmission Date: 20250408
  Serious: No
  Sender: PFIZER
  Company Number: GR-PFIZER INC-PV202400153205

PATIENT
  Age: 6 Year
  Sex: Male
  Weight: 16 kg

DRUGS (6)
  1. GENOTROPIN [Suspect]
     Active Substance: SOMATROPIN
     Indication: Growth hormone deficiency
     Route: 058
     Dates: start: 202408
  2. GENOTROPIN [Suspect]
     Active Substance: SOMATROPIN
     Route: 058
  3. KAYEXALATE [Concomitant]
     Active Substance: SODIUM POLYSTYRENE SULFONATE
     Dosage: 1-2 G, DAILY
  4. AMLOPEN [Concomitant]
  5. DIUREN [HYDROCHLOROTHIAZIDE] [Concomitant]
  6. SODIUM BICARBONATE [Concomitant]
     Active Substance: SODIUM BICARBONATE

REACTIONS (3)
  - Wrong technique in device usage process [Recovered/Resolved]
  - Device leakage [Recovered/Resolved]
  - Product communication issue [Recovered/Resolved]

NARRATIVE: CASE EVENT DATE: 20241123
